FAERS Safety Report 26094481 (Version 1)
Quarter: 2025Q4

REPORT INFORMATION
  Report Type: Spontaneous
  Country: US (occurrence: US)
  Receive Date: 20251126
  Receipt Date: 20251126
  Transmission Date: 20260117
  Serious: No
  Sender: INSUD PHARMA
  Company Number: US-INSUD PHARMA-2511US09690

PATIENT

DRUGS (1)
  1. MELEYA [Suspect]
     Active Substance: NORETHINDRONE
     Indication: Premenstrual dysphoric disorder
     Dosage: UNK
     Route: 048

REACTIONS (2)
  - Pre-existing condition improved [Unknown]
  - Product prescribing issue [Unknown]
